FAERS Safety Report 19778347 (Version 1)
Quarter: 2021Q3

REPORT INFORMATION
  Report Type: Spontaneous
  Country: US (occurrence: US)
  Receive Date: 20210902
  Receipt Date: 20210902
  Transmission Date: 20211014
  Serious: No
  Sender: FDA-Public Use
  Company Number: US-LUNDBECK-DKLU3037280

PATIENT
  Age: 10 Year
  Sex: Male

DRUGS (1)
  1. SABRIL [Suspect]
     Active Substance: VIGABATRIN
     Indication: CHRONIC RESPIRATORY FAILURE
     Route: 048
     Dates: start: 20160404

REACTIONS (1)
  - Off label use [Unknown]
